FAERS Safety Report 7316421 (Version 4)
Quarter: 2012Q4

REPORT INFORMATION
  Report Type: 
  Country: US (occurrence: US)
  Receive Date: 20100311
  Receipt Date: 20121116
  Transmission Date: 20130627
  Serious: Yes (Hospitalization, Other)
  Sender: FDA-Public Use
  Company Number: US-BAYER-201015819NA

PATIENT
  Age: 43 Year
  Sex: Female
  Weight: 65.76 kg

DRUGS (7)
  1. OCELLA [Suspect]
     Indication: PREMENSTRUAL SYNDROME
     Dosage: UNK
     Dates: start: 20080714, end: 20090421
  2. YASMIN [Suspect]
     Indication: PREMENSTRUAL SYNDROME
     Dosage: UNK
     Route: 048
     Dates: start: 20070330, end: 20080425
  3. LOPRESSOR [Concomitant]
  4. ARIXTRA [Concomitant]
  5. LIPITOR [Concomitant]
  6. DOXYCYCLINE [Concomitant]
  7. FEXOFENADINE HYDROCHLORIDE [Concomitant]

REACTIONS (4)
  - Thrombosis [None]
  - Off label use [None]
  - Myocardial infarction [None]
  - Myocardial infarction [None]
